FAERS Safety Report 4576788-6 (Version None)
Quarter: 2005Q1

REPORT INFORMATION
  Report Type: 
  Country: None (occurrence: None)
  Receive Date: 20050210
  Receipt Date: 20050203
  Transmission Date: 20050727
  Serious: Yes (Hospitalization)
  Sender: FDA-Public Use
  Company Number: US-JNJFOC-20050201713

PATIENT
  Sex: Female

DRUGS (3)
  1. DURAGESIC [Suspect]
     Route: 062
     Dates: start: 20030101
  2. NORCO [Concomitant]
     Route: 049
     Dates: start: 20041101
  3. NORCO [Concomitant]
     Route: 049
     Dates: start: 20041101

REACTIONS (4)
  - BLOOD POTASSIUM DECREASED [None]
  - CHOLELITHIASIS [None]
  - DIARRHOEA [None]
  - VOMITING [None]
